FAERS Safety Report 18417864 (Version 2)
Quarter: 2021Q1

REPORT INFORMATION
  Report Type: Spontaneous
  Country: GB (occurrence: GB)
  Receive Date: 20201023
  Receipt Date: 20210201
  Transmission Date: 20210419
  Serious: Yes (Other)
  Sender: FDA-Public Use
  Company Number: GB-JNJFOC-20201021248

PATIENT
  Age: 44 Year
  Sex: Female

DRUGS (1)
  1. IBUPROFEN. [Suspect]
     Active Substance: IBUPROFEN
     Indication: PRODUCT USED FOR UNKNOWN INDICATION
     Dosage: UPTO 100 G IN 24 HOURS
     Route: 048

REACTIONS (6)
  - Paralysis [Recovered/Resolved]
  - Drug dependence [Unknown]
  - Hypokalaemia [Recovered/Resolved]
  - Overdose [Unknown]
  - Hyperchloraemia [Recovered/Resolved]
  - Metabolic acidosis [Recovered/Resolved]
